FAERS Safety Report 9701349 (Version 1)
Quarter: 2013Q4

REPORT INFORMATION
  Report Type: Spontaneous
  Country: US (occurrence: US)
  Receive Date: 20131121
  Receipt Date: 20131121
  Transmission Date: 20140711
  Serious: Yes (Other)
  Sender: FDA-Public Use
  Company Number: US-GILEAD-2008-0016620

PATIENT
  Sex: Male
  Weight: 96.4 kg

DRUGS (20)
  1. LETAIRIS [Suspect]
     Indication: PULMONARY HYPERTENSION
  2. LETAIRIS [Suspect]
  3. ACETYLCYSTEINE [Concomitant]
     Route: 048
  4. ACETYLCYSTEINE [Concomitant]
     Route: 048
  5. ALBUTEROL [Concomitant]
  6. LASIX [Concomitant]
     Route: 048
  7. AZATHIOPRINE [Concomitant]
     Route: 048
  8. POTASSIUM CHLORIDE [Concomitant]
     Route: 048
  9. AMARYL [Concomitant]
     Route: 048
  10. AMARYL [Concomitant]
     Route: 048
  11. AVODART [Concomitant]
     Route: 048
  12. CARDIZEM CD [Concomitant]
     Route: 048
  13. COUMADIN [Concomitant]
     Route: 048
  14. OXYGEN [Concomitant]
  15. DIOVAN [Concomitant]
     Route: 048
  16. LIPITOR [Concomitant]
     Route: 048
  17. PREDNISONE [Concomitant]
     Route: 048
  18. BACTRIM DS [Concomitant]
     Route: 048
  19. FLAXSEED OIL [Concomitant]
  20. ASA [Concomitant]
     Route: 048

REACTIONS (2)
  - Oedema peripheral [Not Recovered/Not Resolved]
  - Weight increased [Not Recovered/Not Resolved]
